FAERS Safety Report 20865713 (Version 1)
Quarter: 2022Q2

REPORT INFORMATION
  Report Type: Spontaneous
  Country: US (occurrence: None)
  Receive Date: 20220523
  Receipt Date: 20220523
  Transmission Date: 20220720
  Serious: No
  Sender: FDA-Public Use
  Company Number: None

PATIENT
  Age: 64 Year
  Sex: Male

DRUGS (1)
  1. LOSARTAN [Suspect]
     Active Substance: LOSARTAN
     Dates: start: 20191118, end: 20220308

REACTIONS (2)
  - Angioedema [None]
  - Lip swelling [None]

NARRATIVE: CASE EVENT DATE: 20220308
